FAERS Safety Report 19413805 (Version 14)
Quarter: 2022Q3

REPORT INFORMATION
  Report Type: Spontaneous
  Country: CA (occurrence: CA)
  Receive Date: 20210615
  Receipt Date: 20220915
  Transmission Date: 20221027
  Serious: Yes (Other)
  Sender: FDA-Public Use
  Company Number: CA-CELLTRION INC.-2020CA028321

PATIENT

DRUGS (30)
  1. INFLECTRA [Suspect]
     Active Substance: INFLIXIMAB-DYYB
     Indication: Colitis ulcerative
     Dosage: 5 MG/KG EVERY 0, 2, 6 WEEKS, THEN EVERY 8 WEEKS
     Route: 042
     Dates: start: 20200908
  2. INFLECTRA [Suspect]
     Active Substance: INFLIXIMAB-DYYB
     Dosage: 5 MG/KG INFUSION AT WEEK 0, AND 2
     Route: 042
     Dates: start: 20200908, end: 20200922
  3. INFLECTRA [Suspect]
     Active Substance: INFLIXIMAB-DYYB
     Dosage: 5 MG/KG EVERY 0, 2, 6 WEEKS, THEN EVERY 8 WEEKS
     Route: 042
     Dates: start: 20200922
  4. INFLECTRA [Suspect]
     Active Substance: INFLIXIMAB-DYYB
     Dosage: 5 MG/KG RESCUE, 10 MG/KG AFTER 2 WEEKS, THEN EVERY 8 WEEKS
     Route: 042
     Dates: start: 20201016
  5. INFLECTRA [Suspect]
     Active Substance: INFLIXIMAB-DYYB
     Dosage: 5 MG/KG, RESCUE DOSE
     Route: 042
     Dates: start: 20201016, end: 20201016
  6. INFLECTRA [Suspect]
     Active Substance: INFLIXIMAB-DYYB
     Dosage: 5 MG/KG RESCUE, 10 MG/KG AFTER 2 WEEKS, THEN EVERY 8 WEEKS
     Route: 042
     Dates: start: 20201029
  7. INFLECTRA [Suspect]
     Active Substance: INFLIXIMAB-DYYB
     Dosage: 10 MG/KG EVERY 8 WEEK
     Route: 042
     Dates: start: 20201028, end: 20201221
  8. INFLECTRA [Suspect]
     Active Substance: INFLIXIMAB-DYYB
     Dosage: 5 MG/KG RESCUE, 10 MG/KG AFTER 2 WEEKS, THEN EVERY 8 WEEKS
     Route: 042
     Dates: start: 20201221
  9. INFLECTRA [Suspect]
     Active Substance: INFLIXIMAB-DYYB
     Dosage: 5 MG/KG RESCUE, 10 MG/KG AFTER 2 WEEKS, THEN EVERY 8 WEEKS
     Route: 042
     Dates: start: 20201221
  10. INFLECTRA [Suspect]
     Active Substance: INFLIXIMAB-DYYB
     Dosage: 5 MG/KG RESCUE, 10 MG/KG AFTER 2 WEEKS, THEN EVERY 8 WEEKS
     Route: 042
     Dates: start: 20201221
  11. INFLECTRA [Suspect]
     Active Substance: INFLIXIMAB-DYYB
     Dosage: 5 MG/KG RESCUE, 10 MG/KG AFTER 2 WEEKS, THEN EVERY 8 WEEKS
     Route: 042
     Dates: start: 20210205
  12. INFLECTRA [Suspect]
     Active Substance: INFLIXIMAB-DYYB
     Dosage: 10 MG/KG EVERY 6 WEEKS
     Route: 042
     Dates: start: 20210205
  13. INFLECTRA [Suspect]
     Active Substance: INFLIXIMAB-DYYB
     Dosage: 5 MG/KG RESCUE, 10 MG/KG AFTER 2 WEEKS, THEN EVERY 8 WEEKS
     Route: 042
     Dates: start: 20210318
  14. INFLECTRA [Suspect]
     Active Substance: INFLIXIMAB-DYYB
     Dosage: 5 MG/KG RESCUE, 10 MG/KG AFTER 2 WEEKS, THEN EVERY 8 WEEKS
     Route: 042
     Dates: start: 20210610
  15. INFLECTRA [Suspect]
     Active Substance: INFLIXIMAB-DYYB
     Dosage: 5 MG/KG RESCUE, 10 MG/KG AFTER 2 WEEKS, THEN EVERY 8 WEEKS
     Route: 042
     Dates: start: 20210722
  16. INFLECTRA [Suspect]
     Active Substance: INFLIXIMAB-DYYB
     Dosage: 5 MG/KG RESCUE, 10 MG/KG AFTER 2 WEEKS, THEN EVERY 8 WEEKS
     Route: 042
     Dates: start: 20210902
  17. INFLECTRA [Suspect]
     Active Substance: INFLIXIMAB-DYYB
     Dosage: 800 MG EVERY 8 WEEKS
     Route: 042
     Dates: start: 20211014
  18. INFLECTRA [Suspect]
     Active Substance: INFLIXIMAB-DYYB
     Dosage: 10 MG/KG EVERY 6 WEEKS
     Route: 042
     Dates: start: 20211125
  19. INFLECTRA [Suspect]
     Active Substance: INFLIXIMAB-DYYB
     Dosage: 10 MG/KG EVERY 6 WEEKS
     Route: 042
     Dates: start: 20220105
  20. INFLECTRA [Suspect]
     Active Substance: INFLIXIMAB-DYYB
     Dosage: 10 MG/KG, EVERY 6 WEEKS
     Route: 042
     Dates: start: 20220216
  21. INFLECTRA [Suspect]
     Active Substance: INFLIXIMAB-DYYB
     Dosage: 10 MG/KG, EVERY 6 WEEKS
     Route: 042
     Dates: start: 20220405
  22. INFLECTRA [Suspect]
     Active Substance: INFLIXIMAB-DYYB
     Dosage: 10 MG/KG, EVERY 6 WEEKS
     Route: 042
     Dates: start: 20220519
  23. INFLECTRA [Suspect]
     Active Substance: INFLIXIMAB-DYYB
     Dosage: 10 MG/KG, EVERY 6 WEEKS
     Route: 042
     Dates: start: 20220627
  24. INFLECTRA [Suspect]
     Active Substance: INFLIXIMAB-DYYB
     Dosage: 10 MG/KG, EVERY 6 WEEKS
     Route: 042
     Dates: start: 20220902
  25. CALCIUM [Concomitant]
     Active Substance: CALCIUM
     Dosage: 1 DF, DOSAGE NOT AVAILABLE
     Route: 065
  26. PANTOPRAZOLE [Concomitant]
     Active Substance: PANTOPRAZOLE
     Dosage: 1 DF, DOSAGE NOT AVAILABLE
     Route: 048
  27. MESALAMINE [Concomitant]
     Active Substance: MESALAMINE
     Dosage: UNK, MONTHLY
  28. MESALAMINE [Concomitant]
     Active Substance: MESALAMINE
     Dosage: UNK, MONTHLY
  29. TRUVADA [Concomitant]
     Active Substance: EMTRICITABINE\TENOFOVIR DISOPROXIL FUMARATE
     Indication: Prophylaxis
     Dosage: UNK UNK, DAILY
  30. CHOLECALCIFEROL [Concomitant]
     Active Substance: CHOLECALCIFEROL
     Dosage: 1 DF, DOSAGE NOT AVAILABLE
     Route: 048

REACTIONS (23)
  - Drug ineffective [Recovered/Resolved]
  - Haematochezia [Recovering/Resolving]
  - Drug ineffective [Unknown]
  - Off label use [Unknown]
  - Off label use [Unknown]
  - Product use issue [Unknown]
  - Inappropriate schedule of product administration [Unknown]
  - Incorrect dose administered [Unknown]
  - Off label use [Unknown]
  - Intentional product use issue [Unknown]
  - Miliaria [Unknown]
  - Heart rate decreased [Unknown]
  - Heart rate abnormal [Unknown]
  - Headache [Not Recovered/Not Resolved]
  - Weight increased [Recovering/Resolving]
  - Condition aggravated [Recovering/Resolving]
  - Acne [Recovered/Resolved]
  - Weight decreased [Unknown]
  - Decreased appetite [Unknown]
  - Diarrhoea [Unknown]
  - Mucous stools [Recovering/Resolving]
  - Frequent bowel movements [Not Recovered/Not Resolved]
  - Faecal calprotectin increased [Unknown]

NARRATIVE: CASE EVENT DATE: 20201016
